FAERS Safety Report 25765885 (Version 1)
Quarter: 2025Q3

REPORT INFORMATION
  Report Type: Spontaneous
  Country: US (occurrence: US)
  Receive Date: 20250905
  Receipt Date: 20250905
  Transmission Date: 20251021
  Serious: No
  Sender: DOMPE FARMACEUTICI
  Company Number: US-FARMAPROD-202407-2584

PATIENT
  Sex: Female

DRUGS (17)
  1. OXERVATE [Suspect]
     Active Substance: CENEGERMIN-BKBJ
     Indication: Neurotrophic keratopathy
     Route: 047
     Dates: start: 20240620
  2. GABAPENTIN [Concomitant]
     Active Substance: GABAPENTIN
  3. ERYTHROMYCIN [Concomitant]
     Active Substance: ERYTHROMYCIN
  4. PREDNISOLONE ACETATE [Concomitant]
     Active Substance: PREDNISOLONE ACETATE
  5. PANTOPRAZOLE SODIUM [Concomitant]
     Active Substance: PANTOPRAZOLE SODIUM
  6. ALBUTEROL SULFATE [Concomitant]
     Active Substance: ALBUTEROL SULFATE
  7. SYMBICORT [Concomitant]
     Active Substance: BUDESONIDE\FORMOTEROL FUMARATE DIHYDRATE
  8. MONTELUKAST SODIUM [Concomitant]
     Active Substance: MONTELUKAST SODIUM
  9. LEVOCETIRIZINE DIHYDROCHLORIDE [Concomitant]
     Active Substance: LEVOCETIRIZINE DIHYDROCHLORIDE
  10. PROBIOTICS NOS [Concomitant]
     Active Substance: PROBIOTICS NOS
  11. MULTIVITAMIN 50 PLUS [Concomitant]
  12. VALACYCLOVIR [Concomitant]
     Active Substance: VALACYCLOVIR HYDROCHLORIDE
  13. DONEPEZIL HYDROCHLORIDE [Concomitant]
     Active Substance: DONEPEZIL HYDROCHLORIDE
  14. HYDROCHLOROTHIAZIDE [Concomitant]
     Active Substance: HYDROCHLOROTHIAZIDE
  15. LISINOPRIL [Concomitant]
     Active Substance: LISINOPRIL
  16. MEMANTINE [Concomitant]
     Active Substance: MEMANTINE
  17. OPTIMIZED FOLATE [Concomitant]

REACTIONS (5)
  - Nasopharyngitis [Unknown]
  - Hypersensitivity [Unknown]
  - Eye discharge [Unknown]
  - Eye pain [Unknown]
  - Ocular hyperaemia [Unknown]
